FAERS Safety Report 7701001-8 (Version None)
Quarter: 2011Q3

REPORT INFORMATION
  Report Type: 
  Country: None (occurrence: None)
  Receive Date: 20110822
  Receipt Date: 20110815
  Transmission Date: 20111222
  Serious: Yes (Death, Life-Threatening, Hospitalization)
  Sender: FDA-Public Use
  Company Number: US-BAYER-2011-023758

PATIENT
  Age: 56 Year
  Sex: Male

DRUGS (2)
  1. NEXAVAR [Suspect]
     Indication: HEPATIC NEOPLASM MALIGNANT
     Dosage: 400 MG, BID
     Route: 048
     Dates: start: 20101228
  2. NEXAVAR [Suspect]
     Dosage: 400 MG, BID
     Dates: start: 20101228, end: 20110801

REACTIONS (3)
  - UPPER GASTROINTESTINAL HAEMORRHAGE [None]
  - OESOPHAGEAL RUPTURE [None]
  - HEPATIC NEOPLASM MALIGNANT [None]
